FAERS Safety Report 14354104 (Version 1)
Quarter: 2018Q1

REPORT INFORMATION
  Report Type: Spontaneous
  Country: GB (occurrence: GB)
  Receive Date: 20180105
  Receipt Date: 20180105
  Transmission Date: 20180509
  Serious: Yes (Life-Threatening)
  Sender: FDA-Public Use
  Company Number: GB-AXELLIA-001248

PATIENT
  Age: 39 Year
  Sex: Female
  Weight: 66 kg

DRUGS (5)
  1. VANCOMYCIN [Suspect]
     Active Substance: VANCOMYCIN
     Indication: OSTEOMYELITIS
     Dosage: 1500 MG LOADING DOSE THEN 1250 MG EVERY 12 HOURS
     Route: 042
     Dates: start: 20171020, end: 20171030
  2. TAZOCIN [Concomitant]
     Active Substance: PIPERACILLIN SODIUM\TAZOBACTAM SODIUM
  3. RAMIPRIL. [Concomitant]
     Active Substance: RAMIPRIL
  4. LYRINEL XL [Concomitant]
     Active Substance: OXYBUTYNIN
  5. CIPROFLOXACIN. [Concomitant]
     Active Substance: CIPROFLOXACIN

REACTIONS (2)
  - Neutropenia [Recovered/Resolved]
  - Dose calculation error [Unknown]

NARRATIVE: CASE EVENT DATE: 20171030
